FAERS Safety Report 23622905 (Version 1)
Quarter: 2024Q1

REPORT INFORMATION
  Report Type: Report from Study
  Country: CO (occurrence: CO)
  Receive Date: 20240312
  Receipt Date: 20240312
  Transmission Date: 20240409
  Serious: Yes (Hospitalization)
  Sender: FDA-Public Use
  Company Number: CO-AstraZeneca-2024A055091

PATIENT
  Age: 87 Day
  Sex: Male
  Weight: 4.3 kg

DRUGS (1)
  1. SYNAGIS [Suspect]
     Active Substance: PALIVIZUMAB
     Indication: Antiviral prophylaxis
     Dosage: 15MG/KG MONTHLY
     Route: 030
     Dates: start: 20240124

REACTIONS (3)
  - Diarrhoea [Recovering/Resolving]
  - Back pain [Recovering/Resolving]
  - Irritability [Recovering/Resolving]

NARRATIVE: CASE EVENT DATE: 20240229
